FAERS Safety Report 13553918 (Version 2)
Quarter: 2017Q2

REPORT INFORMATION
  Report Type: Spontaneous
  Country: US (occurrence: US)
  Receive Date: 20170517
  Receipt Date: 20170526
  Transmission Date: 20170830
  Serious: No
  Sender: FDA-Public Use
  Company Number: US-GLAXOSMITHKLINE-US2017GSK072368

PATIENT
  Sex: Female

DRUGS (3)
  1. FLOLAN DILUENT SOLUTION FOR INJECTION [Suspect]
     Active Substance: GLYCINE\MANNITOL\SODIUM CHLORIDE
     Indication: PULMONARY ARTERIAL HYPERTENSION
  2. REVATIO [Concomitant]
     Active Substance: SILDENAFIL CITRATE
  3. FLOLAN [Suspect]
     Active Substance: EPOPROSTENOL SODIUM
     Indication: PULMONARY ARTERIAL HYPERTENSION
     Dosage: 13 NG/KG/MIN CONTINUOUS
     Route: 042
     Dates: start: 20160216

REACTIONS (6)
  - Emergency care examination [Recovered/Resolved]
  - Device issue [Unknown]
  - Catheterisation venous [Unknown]
  - Catheter management [Unknown]
  - Device alarm issue [Unknown]
  - Complication associated with device [Unknown]
